FAERS Safety Report 9058572 (Version 2)
Quarter: 2013Q1

REPORT INFORMATION
  Report Type: Spontaneous
  Country: FR (occurrence: FR)
  Receive Date: 20130211
  Receipt Date: 20130301
  Transmission Date: 20140127
  Serious: Yes (Other)
  Sender: FDA-Public Use
  Company Number: PHHY2012FR024574

PATIENT
  Age: 56 Year
  Sex: Female
  Weight: 65 kg

DRUGS (3)
  1. ACLASTA [Suspect]
     Indication: OSTEOPOROSIS
     Dosage: UNK UKN, UNK
     Route: 042
     Dates: start: 20120227
  2. PROZAC [Concomitant]
     Dosage: UNK UKN, UNK
  3. LYRICA [Concomitant]
     Indication: NEURALGIA
     Dosage: UNK UKN, UNK

REACTIONS (11)
  - Pertussis [Recovered/Resolved]
  - Immunodeficiency [Unknown]
  - Influenza [Recovered/Resolved]
  - Neutropenia [Recovered/Resolved]
  - Pyrexia [Recovered/Resolved]
  - Musculoskeletal stiffness [Recovered/Resolved]
  - Pain in extremity [Unknown]
  - Arthralgia [Not Recovered/Not Resolved]
  - Pain [Unknown]
  - Myalgia [Not Recovered/Not Resolved]
  - Fatigue [Unknown]
